FAERS Safety Report 14215298 (Version 1)
Quarter: 2017Q4

REPORT INFORMATION
  Report Type: Report from Study
  Country: EC (occurrence: EC)
  Receive Date: 20171122
  Receipt Date: 20171122
  Transmission Date: 20180321
  Serious: Yes (Other)
  Sender: FDA-Public Use
  Company Number: EC-ROCHE-2025504

PATIENT
  Sex: Female

DRUGS (3)
  1. TAVEGIL [Concomitant]
     Active Substance: CLEMASTINE FUMARATE
     Dosage: 1 AMPOULE OF TAVEGIL EVERY TIME THE CHEMOTHERAPY WAS ADMINISTRED TO AVOID ALLERGIC REACTIONS.
     Route: 065
  2. MABTHERA [Suspect]
     Active Substance: RITUXIMAB
     Indication: RHEUMATOID ARTHRITIS
     Dosage: INTERRUPTED FOR 6 MONTHS
     Route: 042
     Dates: start: 2014
  3. METHYLPREDNISOLONE. [Concomitant]
     Active Substance: METHYLPREDNISOLONE

REACTIONS (2)
  - Hepatic enzyme increased [Recovered/Resolved]
  - Overweight [Recovered/Resolved]

NARRATIVE: CASE EVENT DATE: 2016
